FAERS Safety Report 11795442 (Version 3)
Quarter: 2015Q4

REPORT INFORMATION
  Report Type: Report from Study
  Country: CH (occurrence: CH)
  Receive Date: 20151202
  Receipt Date: 20151223
  Transmission Date: 20160305
  Serious: Yes (Hospitalization)
  Sender: FDA-Public Use
  Company Number: CH-ABBVIE-15P-151-1493968-00

PATIENT
  Sex: Male

DRUGS (2)
  1. DUODOPA [Suspect]
     Active Substance: CARBIDOPA\LEVODOPA
     Indication: PARKINSON^S DISEASE
     Dosage: MORNING DOSE: 6ML, CONTINUOUS DOSE: 2.8ML/H, EXTRA DOSE: 1ML
     Route: 050
     Dates: start: 201501
  2. DUODOPA [Suspect]
     Active Substance: CARBIDOPA\LEVODOPA
     Dosage: MORNING DOSE: 6ML, CONTINUOUS DOSE: 2.7ML/H, EXTRA DOSE: 1ML
     Route: 050
     Dates: start: 201510

REACTIONS (2)
  - Device dislocation [Recovered/Resolved]
  - Hyperkinesia [Unknown]
